FAERS Safety Report 4554774-X (Version None)
Quarter: 2005Q1

REPORT INFORMATION
  Report Type: 
  Country: None (occurrence: None)
  Receive Date: 20050118
  Receipt Date: 20050105
  Transmission Date: 20050727
  Serious: Yes (Death, Hospitalization)
  Sender: FDA-Public Use
  Company Number: FR-GLAXOSMITHKLINE-B0364025A

PATIENT
  Age: 45 Year
  Sex: Female
  Weight: 65 kg

DRUGS (15)
  1. ZOPHREN [Suspect]
     Indication: NAUSEA
     Dosage: 8MG CYCLIC
     Route: 048
     Dates: start: 20040728, end: 20040924
  2. LARGACTIL [Suspect]
     Indication: NAUSEA
     Route: 048
     Dates: start: 20040728, end: 20040924
  3. VEPESID [Suspect]
     Indication: BRONCHIAL CARCINOMA
     Dosage: 170MG CYCLIC
     Route: 042
     Dates: start: 20040728, end: 20040924
  4. OMEPRAZOLE [Suspect]
     Route: 048
     Dates: start: 20040701
  5. CISPLATIN [Suspect]
     Indication: BRONCHIAL CARCINOMA
     Dosage: 50MG CYCLIC
     Route: 042
     Dates: start: 20040728, end: 20040924
  6. LEXOMIL [Suspect]
     Route: 048
     Dates: start: 20040728, end: 20041025
  7. PRIMPERAN INJ [Concomitant]
     Route: 065
     Dates: start: 20040728
  8. SOLU-MEDROL [Concomitant]
     Route: 065
     Dates: start: 20040701
  9. DEROXAT [Concomitant]
     Route: 065
     Dates: start: 20040728, end: 20041025
  10. ZOLPIDEM TARTRATE [Concomitant]
     Route: 065
     Dates: start: 20040701
  11. DENSICAL D3 [Concomitant]
     Route: 065
     Dates: start: 20040701, end: 20041025
  12. SOLUPRED [Concomitant]
     Route: 065
     Dates: start: 20040701
  13. DURAGESIC [Concomitant]
     Route: 065
  14. ACTISKENAN [Concomitant]
     Route: 065
  15. ATARAX [Concomitant]
     Route: 065
     Dates: start: 20040701, end: 20040728

REACTIONS (17)
  - ALVEOLITIS [None]
  - ANAEMIA [None]
  - BLOOD CREATININE DECREASED [None]
  - BRONCHOALVEOLAR LAVAGE ABNORMAL [None]
  - C-REACTIVE PROTEIN INCREASED [None]
  - CHEST X-RAY ABNORMAL [None]
  - COUGH [None]
  - CREATININE RENAL CLEARANCE DECREASED [None]
  - DEPRESSED LEVEL OF CONSCIOUSNESS [None]
  - GENERAL PHYSICAL HEALTH DETERIORATION [None]
  - INFLAMMATION [None]
  - LUNG CONSOLIDATION [None]
  - LUNG DISORDER [None]
  - NEUTROPHILIA [None]
  - PYREXIA [None]
  - SEPTIC SHOCK [None]
  - VOMITING [None]
